APPROVED DRUG PRODUCT: IBUPROFEN
Active Ingredient: IBUPROFEN
Strength: 800MG
Dosage Form/Route: TABLET;ORAL
Application: A075682 | Product #003 | TE Code: AB
Applicant: DR REDDYS LABORATORIES INC
Approved: Nov 14, 2001 | RLD: No | RS: Yes | Type: RX